FAERS Safety Report 5070049-7 (Version None)
Quarter: 2006Q3

REPORT INFORMATION
  Report Type: 
  Country: None (occurrence: None)
  Receive Date: 20060731
  Receipt Date: 20060720
  Transmission Date: 20061208
  Serious: Yes (Hospitalization)
  Sender: FDA-Public Use
  Company Number: 2006090453

PATIENT
  Age: 53 Year
  Sex: Female

DRUGS (5)
  1. AZULFIDINE EN-TABS [Suspect]
     Indication: MUSCULOSKELETAL PAIN
     Dosage: 500 MG, DAILY, ORAL
     Route: 048
     Dates: start: 20060523, end: 20060705
  2. ALENDRONATE SODIUM [Concomitant]
  3. MARZULENE S (LEVOGLUTAMINE, SODIUM GUALENATE) [Concomitant]
  4. PREDNISOLONE [Concomitant]
  5. LOXONIN (LOXOPROFEN SODIUM) [Concomitant]

REACTIONS (1)
  - NEUTROPENIA [None]
